FAERS Safety Report 10640198 (Version 3)
Quarter: 2015Q1

REPORT INFORMATION
  Report Type: Spontaneous
  Country: IE (occurrence: IE)
  Receive Date: 20141209
  Receipt Date: 20150324
  Transmission Date: 20150720
  Serious: Yes (Death)
  Sender: FDA-Public Use
  Company Number: IE-TAKEDA-2014JNJ006038

PATIENT

DRUGS (16)
  1. THALIDOMIDE [Concomitant]
     Active Substance: THALIDOMIDE
  2. ZOTON [Concomitant]
     Active Substance: LANSOPRAZOLE
  3. FOLIC ACID. [Concomitant]
     Active Substance: FOLIC ACID
  4. DEXAMETHASONE. [Concomitant]
     Active Substance: DEXAMETHASONE
  5. KIOVIG [Concomitant]
     Active Substance: HUMAN IMMUNOGLOBULIN G
  6. ALLOPURINOL. [Concomitant]
     Active Substance: ALLOPURINOL
  7. NEORECORMON [Concomitant]
     Active Substance: ERYTHROPOIETIN
  8. SEPTRIN [Concomitant]
     Active Substance: SULFAMETHOXAZOLE\TRIMETHOPRIM
  9. OROVITE [Concomitant]
  10. ZOMETA [Concomitant]
     Active Substance: ZOLEDRONIC ACID
  11. CALCICHEW [Concomitant]
     Active Substance: CALCIUM CARBONATE
  12. INNOHEP [Concomitant]
     Active Substance: TINZAPARIN SODIUM
  13. VALTREX [Concomitant]
     Active Substance: VALACYCLOVIR HYDROCHLORIDE
  14. VELCADE [Suspect]
     Active Substance: BORTEZOMIB
     Indication: PLASMA CELL MYELOMA
     Dosage: 1.3 MG/M2, UNK
     Route: 058
     Dates: start: 20130816
  15. COMBIVENT [Concomitant]
     Active Substance: ALBUTEROL SULFATE\IPRATROPIUM BROMIDE
  16. ACTIQ [Concomitant]
     Active Substance: FENTANYL CITRATE

REACTIONS (2)
  - Death [Fatal]
  - Arthralgia [Unknown]
